FAERS Safety Report 10506323 (Version 2)
Quarter: 2014Q4

REPORT INFORMATION
  Report Type: Spontaneous
  Country: BR (occurrence: BR)
  Receive Date: 20141009
  Receipt Date: 20141009
  Transmission Date: 20150528
  Serious: Yes (Other)
  Sender: FDA-Public Use
  Company Number: BR-PFIZER INC-2014271564

PATIENT
  Age: 76 Year
  Sex: Female
  Weight: 85 kg

DRUGS (4)
  1. ALPRAZOLAM. [Suspect]
     Active Substance: ALPRAZOLAM
     Indication: DEPRESSION
     Dosage: 1 TABLET EVERY 12 HOURS
     Route: 048
     Dates: start: 2010
  2. DIOVAN HCT [Concomitant]
     Active Substance: HYDROCHLOROTHIAZIDE\VALSARTAN
     Indication: BLOOD PRESSURE
     Dosage: 1 TABLET
  3. EUTHYROX [Concomitant]
     Active Substance: LEVOTHYROXINE SODIUM
     Indication: THYROID DISORDER
     Dosage: 1 TABLET AT FASTING
     Dates: start: 2008
  4. FRONTAL [Suspect]
     Active Substance: ALPRAZOLAM
     Indication: DEPRESSION
     Dosage: 1 TABLET OF 2 MG, EVERY 12 HOURS
     Route: 048
     Dates: start: 2010

REACTIONS (3)
  - Joint injury [Unknown]
  - Blood pressure increased [Unknown]
  - Synovial disorder [Unknown]
